FAERS Safety Report 7014110-6 (Version None)
Quarter: 2010Q3

REPORT INFORMATION
  Report Type: 
  Country: None (occurrence: None)
  Receive Date: 20100927
  Receipt Date: 20100917
  Transmission Date: 20110219
  Serious: Yes (Hospitalization)
  Sender: FDA-Public Use
  Company Number: US-US-EMD SERONO, INC.-7018073

PATIENT
  Sex: Female

DRUGS (8)
  1. REBIF [Suspect]
     Indication: MULTIPLE SCLEROSIS
     Route: 058
     Dates: start: 20090707, end: 20100809
  2. REBIF [Suspect]
     Route: 058
     Dates: start: 20100830, end: 20100801
  3. ALDACTONE [Concomitant]
     Indication: HYPERTENSION
  4. COUMADIN [Concomitant]
     Indication: THROMBOSIS
  5. CELEXA [Concomitant]
     Indication: DEPRESSION
  6. SINGULAIR [Concomitant]
     Indication: ASTHMA
  7. COMBIVENT [Concomitant]
     Indication: ASTHMA
  8. LASIX [Concomitant]
     Indication: HYPERTENSION

REACTIONS (10)
  - ABDOMINAL PAIN [None]
  - APPENDICITIS [None]
  - CEREBROVASCULAR ACCIDENT [None]
  - COGNITIVE DISORDER [None]
  - ENTEROCOCCAL INFECTION [None]
  - MULTIPLE SCLEROSIS RELAPSE [None]
  - SYNCOPE [None]
  - UNRESPONSIVE TO STIMULI [None]
  - VIITH NERVE PARALYSIS [None]
  - VISION BLURRED [None]
